FAERS Safety Report 9971060 (Version 2)
Quarter: 2014Q1

REPORT INFORMATION
  Report Type: Report from Study
  Country: US (occurrence: US)
  Receive Date: 20140306
  Receipt Date: 20140306
  Transmission Date: 20141002
  Serious: No
  Sender: FDA-Public Use
  Company Number: US-ABBVIE-13P-163-1126421-00

PATIENT
  Age: 43 Year
  Sex: Male

DRUGS (3)
  1. HUMIRA [Suspect]
     Indication: PSORIASIS
     Dates: start: 20130618, end: 20130618
  2. HUMIRA [Suspect]
  3. ISOTONIX ADVANCED B COMPLEX [Concomitant]
     Indication: IMMUNE ENHANCEMENT THERAPY
     Dosage: DAILY

REACTIONS (4)
  - Weight increased [Not Recovered/Not Resolved]
  - Therapeutic response unexpected [Unknown]
  - Pruritus [Not Recovered/Not Resolved]
  - Rash [Not Recovered/Not Resolved]
